FAERS Safety Report 16978547 (Version 2)
Quarter: 2019Q4

REPORT INFORMATION
  Report Type: Spontaneous
  Country: US (occurrence: US)
  Receive Date: 20191031
  Receipt Date: 20191202
  Transmission Date: 20200122
  Serious: No
  Sender: FDA-Public Use
  Company Number: US-JNJFOC-20191032909

PATIENT
  Sex: Female
  Weight: 74.91 kg

DRUGS (1)
  1. TREMFYA [Suspect]
     Active Substance: GUSELKUMAB
     Indication: PSORIASIS
     Dosage: 100 MG AT WEEK 0, WEEK 4 THEN EVERY 8 WEEKS
     Route: 058

REACTIONS (1)
  - Injection site reaction [Recovered/Resolved with Sequelae]

NARRATIVE: CASE EVENT DATE: 2019
